FAERS Safety Report 6644975-9 (Version None)
Quarter: 2010Q1

REPORT INFORMATION
  Report Type: 
  Country: None (occurrence: None)
  Receive Date: 20100322
  Receipt Date: 20100310
  Transmission Date: 20100710
  Serious: Yes (Other)
  Sender: FDA-Public Use
  Company Number: PHBS2008NO00687

PATIENT
  Sex: Female

DRUGS (5)
  1. CARBAMAZEPINE [Suspect]
     Indication: EPILEPSY
     Dosage: 500 MG/DAY
     Route: 065
  2. CARBAMAZEPINE [Suspect]
     Dosage: 400 MG/DAY
     Route: 065
  3. CARBAMAZEPINE [Suspect]
     Dosage: 800 MG/DAY
     Route: 065
  4. LEVETIRACETAM [Suspect]
     Indication: CONVULSION
     Dosage: 1000 MG/DAY, AT CONCEPTION
     Route: 065
  5. LEVETIRACETAM [Suspect]
     Dosage: 2000 MG/D
     Route: 065

REACTIONS (5)
  - COMPLEX PARTIAL SEIZURES [None]
  - CONVULSION [None]
  - DRUG EXPOSURE DURING PREGNANCY [None]
  - GRAND MAL CONVULSION [None]
  - NORMAL NEWBORN [None]
